FAERS Safety Report 8319426-9 (Version None)
Quarter: 2012Q2

REPORT INFORMATION
  Report Type: 
  Country: None (occurrence: None)
  Receive Date: 20120426
  Receipt Date: 20120426
  Transmission Date: 20120825
  Serious: Yes (Other)
  Sender: FDA-Public Use
  Company Number: None

PATIENT
  Age: 47 Year
  Sex: Female
  Weight: 70.5 kg

DRUGS (4)
  1. LAMITROGENE GLAXOSMITHKLINE [Suspect]
     Indication: EPILEPSY
     Dosage: 75 MG 1/2 TABLET DAILY
     Dates: start: 20100401, end: 20100910
  2. LAMITROGENE GLAXOSMITHKLINE [Suspect]
     Indication: ECONOMIC PROBLEM
     Dosage: 75 MG 1/2 TABLET DAILY
     Dates: start: 20100401, end: 20100910
  3. LAMICTAL [Concomitant]
  4. DEPAKOTE [Concomitant]

REACTIONS (12)
  - BACK PAIN [None]
  - PRODUCT SUBSTITUTION ISSUE [None]
  - HEADACHE [None]
  - DRUG HYPERSENSITIVITY [None]
  - IRRITABILITY [None]
  - DIZZINESS [None]
  - PERSONALITY CHANGE [None]
  - FAMILY STRESS [None]
  - MOOD SWINGS [None]
  - AMNESIA [None]
  - BALANCE DISORDER [None]
  - IMPAIRED WORK ABILITY [None]
